FAERS Safety Report 10797756 (Version 1)
Quarter: 2015Q1

REPORT INFORMATION
  Report Type: Spontaneous
  Country: US (occurrence: US)
  Receive Date: 20150216
  Receipt Date: 20150216
  Transmission Date: 20150721
  Serious: No
  Sender: FDA-Public Use
  Company Number: US-PFIZER INC-2015051561

PATIENT
  Age: 43 Year
  Sex: Male
  Weight: 79 kg

DRUGS (8)
  1. CHLORASEPTIC SORE THROAT [Suspect]
     Active Substance: PHENOL
     Indication: INFLUENZA
  2. ADVIL [Suspect]
     Active Substance: IBUPROFEN
     Indication: INFLUENZA
  3. SUDAFED [Suspect]
     Active Substance: PSEUDOEPHEDRINE HYDROCHLORIDE
     Indication: INFLUENZA
  4. SUDAFED [Suspect]
     Active Substance: PSEUDOEPHEDRINE HYDROCHLORIDE
     Indication: NASOPHARYNGITIS
     Dosage: 30 MG, EVERY 4-6 HOURS
     Route: 048
     Dates: start: 20150201
  5. CHLORASEPTIC SORE THROAT [Suspect]
     Active Substance: PHENOL
     Indication: NASOPHARYNGITIS
     Dosage: SPRAYS THROAT AT BEDTIME
     Dates: start: 20150201
  6. MUCINEX [Suspect]
     Active Substance: GUAIFENESIN
     Indication: NASOPHARYNGITIS
     Dosage: 2 DF, EVERY 4-6 HOURS
     Route: 048
     Dates: start: 20150201
  7. ADVIL [Suspect]
     Active Substance: IBUPROFEN
     Indication: NASOPHARYNGITIS
     Dosage: 2 CAPSULES EVERY 6 HOURS
     Route: 048
     Dates: start: 20150201
  8. MUCINEX [Suspect]
     Active Substance: GUAIFENESIN
     Indication: INFLUENZA

REACTIONS (3)
  - Rash [Not Recovered/Not Resolved]
  - Insomnia [Not Recovered/Not Resolved]
  - Overdose [Unknown]

NARRATIVE: CASE EVENT DATE: 20150201
